FAERS Safety Report 24982886 (Version 1)
Quarter: 2025Q1

REPORT INFORMATION
  Report Type: Spontaneous
  Country: GB (occurrence: GB)
  Receive Date: 20250218
  Receipt Date: 20250218
  Transmission Date: 20250409
  Serious: Yes (Hospitalization)
  Sender: PFIZER
  Company Number: GB-PFIZER INC-202500016078

PATIENT
  Age: 58 Year
  Sex: Male

DRUGS (8)
  1. MYLOTARG [Suspect]
     Active Substance: GEMTUZUMAB OZOGAMICIN
     Indication: Acute myeloid leukaemia
     Dates: start: 20240214
  2. MYLOTARG [Suspect]
     Active Substance: GEMTUZUMAB OZOGAMICIN
     Dates: start: 20240409
  3. CYTARABINE [Suspect]
     Active Substance: CYTARABINE
     Indication: Acute myeloid leukaemia
     Dates: start: 20240214
  4. CYTARABINE [Suspect]
     Active Substance: CYTARABINE
     Dates: start: 20240409
  5. CYTARABINE [Suspect]
     Active Substance: CYTARABINE
     Dates: start: 20240603
  6. CYTARABINE [Suspect]
     Active Substance: CYTARABINE
     Dates: start: 20240716
  7. DAUNORUBICIN [Suspect]
     Active Substance: DAUNORUBICIN
     Indication: Acute myeloid leukaemia
     Dates: start: 20240214
  8. DAUNORUBICIN [Suspect]
     Active Substance: DAUNORUBICIN
     Dates: start: 20240409

REACTIONS (2)
  - Neutropenic colitis [Unknown]
  - COVID-19 [Unknown]

NARRATIVE: CASE EVENT DATE: 20240101
